FAERS Safety Report 23246598 (Version 1)
Quarter: 2023Q4

REPORT INFORMATION
  Report Type: Spontaneous
  Country: US (occurrence: US)
  Receive Date: 20231130
  Receipt Date: 20231130
  Transmission Date: 20240110
  Serious: Yes (Hospitalization)
  Sender: FDA-Public Use
  Company Number: US-AMGEN-USASP2023210583

PATIENT
  Age: 90 Year
  Sex: Male

DRUGS (5)
  1. CINACALCET HYDROCHLORIDE [Suspect]
     Active Substance: CINACALCET HYDROCHLORIDE
     Indication: Hypercalcaemia
     Dosage: 30 MILLIGRAM, QD (13 DAYS)
     Route: 065
  2. CINACALCET HYDROCHLORIDE [Suspect]
     Active Substance: CINACALCET HYDROCHLORIDE
     Indication: Hyperparathyroidism primary
     Dosage: 60 MILLIGRAM, BID (PO)
     Route: 065
  3. CALCITONIN [Concomitant]
     Active Substance: CALCITONIN
     Indication: Hypercalcaemia
     Dosage: UNK
     Route: 065
  4. CALCITONIN [Concomitant]
     Active Substance: CALCITONIN
     Dosage: 6 MILLIGRAM, Q6H
     Route: 030
  5. ZOLEDRONIC ACID [Concomitant]
     Active Substance: ZOLEDRONIC ACID
     Dosage: 4 MILLIGRAM (INFUSION)
     Route: 065

REACTIONS (7)
  - Hypokalaemia [Unknown]
  - Urinary tract infection [Unknown]
  - Atrioventricular block complete [Recovered/Resolved]
  - Pneumonia aspiration [Unknown]
  - Electrolyte imbalance [Unknown]
  - Parathyroid tumour benign [Unknown]
  - Drug resistance [Unknown]
